FAERS Safety Report 20468348 (Version 2)
Quarter: 2022Q2

REPORT INFORMATION
  Report Type: Spontaneous
  Country: GB (occurrence: GB)
  Receive Date: 20220214
  Receipt Date: 20220513
  Transmission Date: 20220721
  Serious: Yes (Disabling, Other)
  Sender: FDA-Public Use
  Company Number: None

PATIENT
  Sex: Female

DRUGS (1)
  1. AMITRIPTYLINE [Suspect]
     Active Substance: AMITRIPTYLINE
     Indication: Product used for unknown indication
     Dates: start: 2016

REACTIONS (10)
  - Abdominal distension [Unknown]
  - Dysuria [Unknown]
  - Dyschezia [Unknown]
  - Pain [Unknown]
  - Haematemesis [Unknown]
  - Confusional state [Unknown]
  - Social avoidant behaviour [Unknown]
  - Malaise [Unknown]
  - Pollakiuria [Unknown]
  - Constipation [Unknown]
